FAERS Safety Report 16627612 (Version 1)
Quarter: 2019Q3

REPORT INFORMATION
  Report Type: Report from Study
  Country: US (occurrence: US)
  Receive Date: 20190724
  Receipt Date: 20190724
  Transmission Date: 20191004
  Serious: Yes (Death, Other)
  Sender: FDA-Public Use
  Company Number: US-GILEAD-2019-0419810

PATIENT
  Age: 76 Year
  Sex: Female

DRUGS (12)
  1. OXYBUTYNIN. [Concomitant]
     Active Substance: OXYBUTYNIN CHLORIDE
  2. LYRICA [Concomitant]
     Active Substance: PREGABALIN
  3. TADALAFIL. [Concomitant]
     Active Substance: TADALAFIL
  4. ASPIRIN (E.C.) [Concomitant]
     Active Substance: ASPIRIN
  5. AMBRISENTAN [Suspect]
     Active Substance: AMBRISENTAN
     Indication: PULMONARY ARTERIAL HYPERTENSION
     Dosage: 10 MG, QD
     Route: 065
     Dates: start: 20180525
  6. ACIPHEX [Concomitant]
     Active Substance: RABEPRAZOLE SODIUM
  7. LEVOTHYROXINE. [Concomitant]
     Active Substance: LEVOTHYROXINE
  8. MIDODRINE [Concomitant]
     Active Substance: MIDODRINE
  9. ATORVASTATIN [Concomitant]
     Active Substance: ATORVASTATIN
  10. SILDENAFIL. [Concomitant]
     Active Substance: SILDENAFIL
  11. CYMBALTA [Concomitant]
     Active Substance: DULOXETINE HYDROCHLORIDE
  12. TORSEMIDE. [Concomitant]
     Active Substance: TORSEMIDE

REACTIONS (1)
  - Death [Fatal]
